FAERS Safety Report 8449205-3 (Version None)
Quarter: 2012Q2

REPORT INFORMATION
  Report Type: 
  Country: None (occurrence: None)
  Receive Date: 20120619
  Receipt Date: 20120611
  Transmission Date: 20120825
  Serious: Yes (Other)
  Sender: FDA-Public Use
  Company Number: ES-ROXANE LABORATORIES, INC.-2012-RO-01395RO

PATIENT
  Age: 45 Year
  Sex: Female

DRUGS (3)
  1. DOXYLAMINE [Suspect]
     Indication: DEPRESSION
  2. OXCARBAZEPINE [Suspect]
     Indication: DEPRESSION
  3. PAROXETINE [Suspect]
     Indication: DEPRESSION

REACTIONS (2)
  - FOLLICULAR MUCINOSIS [None]
  - DRUG RASH WITH EOSINOPHILIA AND SYSTEMIC SYMPTOMS [None]
